FAERS Safety Report 7347934-6 (Version None)
Quarter: 2011Q1

REPORT INFORMATION
  Report Type: 
  Country: None (occurrence: None)
  Receive Date: 20110311
  Receipt Date: 20100916
  Transmission Date: 20110831
  Serious: Yes (Hospitalization, Other)
  Sender: FDA-Public Use
  Company Number: US-BAYER-201019417NA

PATIENT
  Sex: Female
  Weight: 79.365 kg

DRUGS (5)
  1. TRINESSA [Concomitant]
  2. MIDRIN [Concomitant]
     Indication: CONTRACEPTION
  3. YASMIN [Suspect]
     Indication: ORAL CONTRACEPTION
     Route: 048
     Dates: start: 20090801
  4. YASMIN [Suspect]
  5. PREVACID [Concomitant]

REACTIONS (2)
  - CHOLELITHIASIS [None]
  - BILIARY COLIC [None]
